FAERS Safety Report 8756106 (Version 2)
Quarter: 2012Q4

REPORT INFORMATION
  Report Type: 
  Country: US (occurrence: US)
  Receive Date: 20120828
  Receipt Date: 20120925
  Transmission Date: 20130627
  Serious: No
  Sender: FDA-Public Use
  Company Number: US-PFIZER INC-2012208770

PATIENT
  Sex: Female
  Weight: 70 kg

DRUGS (3)
  1. FLECTOR [Suspect]
     Indication: PROCEDURAL PAIN
     Dosage: UNK, every 12 hours
     Dates: start: 20120726
  2. WELLBUTRIN [Concomitant]
     Indication: SMOKING CESSATION THERAPY
     Dosage: 150 mg, 2x/day
  3. TRAMADOL [Concomitant]
     Indication: PAIN
     Dosage: 50 mg, 2x/day

REACTIONS (1)
  - False positive investigation result [Unknown]
